FAERS Safety Report 19265251 (Version 11)
Quarter: 2022Q4

REPORT INFORMATION
  Report Type: Report from Study
  Country: JP (occurrence: JP)
  Receive Date: 20210517
  Receipt Date: 20221107
  Transmission Date: 20230112
  Serious: Yes (Death, Hospitalization, Other)
  Sender: FDA-Public Use
  Company Number: JP-BRISTOL-MYERS SQUIBB COMPANY-BMS-2021-030813

PATIENT
  Age: 63 Year
  Weight: 67.4 kg

DRUGS (9)
  1. YERVOY [Suspect]
     Active Substance: IPILIMUMAB
     Indication: Metastatic renal cell carcinoma
     Dosage: 67 MG, Q3W
     Route: 041
     Dates: start: 20210107, end: 20210311
  2. YERVOY [Suspect]
     Active Substance: IPILIMUMAB
     Indication: Product used for unknown indication
     Route: 065
  3. OPDIVO [Suspect]
     Active Substance: NIVOLUMAB
     Indication: Metastatic renal cell carcinoma
     Dosage: 240 MG, Q3W
     Route: 041
     Dates: start: 20210107, end: 20210311
  4. OPDIVO [Suspect]
     Active Substance: NIVOLUMAB
     Indication: Product used for unknown indication
     Route: 065
  5. IOPROMIDE [Concomitant]
     Active Substance: IOPROMIDE
     Indication: Imaging procedure
     Route: 065
     Dates: start: 20210322, end: 20210322
  6. IOPROMIDE [Concomitant]
     Active Substance: IOPROMIDE
  7. ZOLEDRONIC ACID [Concomitant]
     Active Substance: ZOLEDRONIC ACID
     Indication: Product used for unknown indication
     Route: 042
     Dates: start: 20210115, end: 20210311
  8. PROSCOPE 370 [Concomitant]
     Indication: Imaging procedure
     Route: 065
     Dates: start: 20210311, end: 20210311
  9. PROSCOPE 370 [Concomitant]
     Route: 065
     Dates: start: 20210316, end: 20210316

REACTIONS (8)
  - Hepatic failure [Fatal]
  - Malaise [Not Recovered/Not Resolved]
  - Disseminated intravascular coagulation [Not Recovered/Not Resolved]
  - Malignant neoplasm progression [Unknown]
  - Cognitive disorder [Unknown]
  - Loss of personal independence in daily activities [Unknown]
  - Pyrexia [Unknown]
  - Decreased appetite [Unknown]

NARRATIVE: CASE EVENT DATE: 20210315
